FAERS Safety Report 5602176-7 (Version None)
Quarter: 2008Q1

REPORT INFORMATION
  Report Type: 
  Country: None (occurrence: None)
  Receive Date: 20080125
  Receipt Date: 20080118
  Transmission Date: 20080703
  Serious: Yes (Other)
  Sender: FDA-Public Use
  Company Number: HQWYE337822JUL04

PATIENT
  Sex: Female

DRUGS (2)
  1. PREMPRO [Suspect]
     Dosage: UNKNOWN
     Dates: start: 19970901, end: 20000501
  2. PREMARIN [Suspect]
     Dosage: UNKNOWN
     Dates: start: 19940101, end: 19971101

REACTIONS (2)
  - BREAST CANCER METASTATIC [None]
  - MYOCARDIAL INFARCTION [None]
